FAERS Safety Report 4505416-0 (Version None)
Quarter: 2004Q4

REPORT INFORMATION
  Report Type: 
  Country: None (occurrence: None)
  Receive Date: 20041018
  Receipt Date: 20040831
  Transmission Date: 20050328
  Serious: Yes (Other)
  Sender: FDA-Public Use
  Company Number: 204142

PATIENT

DRUGS (1)
  1. XOLAIR [Suspect]

REACTIONS (1)
  - LUNG NEOPLASM MALIGNANT [None]
